FAERS Safety Report 7783256-7 (Version None)
Quarter: 2011Q3

REPORT INFORMATION
  Report Type: 
  Country: None (occurrence: None)
  Receive Date: 20110928
  Receipt Date: 20110919
  Transmission Date: 20111222
  Serious: Yes (Other)
  Sender: FDA-Public Use
  Company Number: DE-JNJFOC-20110907255

PATIENT
  Age: 59 Year
  Sex: Male

DRUGS (1)
  1. PALIPERIDONE [Suspect]
     Indication: PRODUCT USED FOR UNKNOWN INDICATION
     Route: 030
     Dates: start: 20110601

REACTIONS (2)
  - CEREBRAL INFARCTION [None]
  - CONFUSIONAL STATE [None]
